FAERS Safety Report 19117560 (Version 1)
Quarter: 2021Q2

REPORT INFORMATION
  Report Type: Spontaneous
  Country: GB (occurrence: GB)
  Receive Date: 20210410
  Receipt Date: 20210410
  Transmission Date: 20210717
  Serious: Yes (Other)
  Sender: FDA-Public Use
  Company Number: GB-TAKEDA-2021TUS020980

PATIENT

DRUGS (3)
  1. BALSALAZIDE SODIUM [Concomitant]
     Active Substance: BALSALAZIDE
     Indication: ILL-DEFINED DISORDER
     Dosage: UNK
  2. PREDNISOLONE. [Concomitant]
     Active Substance: PREDNISOLONE
     Indication: ILL-DEFINED DISORDER
     Dosage: UNK
  3. ENTYVIO [Suspect]
     Active Substance: VEDOLIZUMAB
     Indication: COLITIS ULCERATIVE
     Dosage: 300 MILLIGRAM
     Route: 042
     Dates: start: 20210118, end: 20210301

REACTIONS (1)
  - Neutrophilic dermatosis [Recovering/Resolving]

NARRATIVE: CASE EVENT DATE: 20210302
